FAERS Safety Report 10507610 (Version 1)
Quarter: 2014Q4

REPORT INFORMATION
  Report Type: Spontaneous
  Country: CA (occurrence: None)
  Receive Date: 20141008
  Receipt Date: 20141008
  Transmission Date: 20150528
  Serious: Yes (Other)
  Sender: FDA-Public Use
  Company Number: None

PATIENT
  Age: 14 Year
  Sex: Female
  Weight: 56.7 kg

DRUGS (1)
  1. ORTHO EVRA [Suspect]
     Active Substance: ETHINYL ESTRADIOL\NORELGESTROMIN
     Indication: CONTRACEPTION
     Dosage: 1 PATCH/ WEEK X 3 WEEKS, 1 PATCH / WK X 3 WK, TRANSDERMAL
     Route: 062
     Dates: start: 20140912, end: 20140919

REACTIONS (1)
  - Urticaria [None]

NARRATIVE: CASE EVENT DATE: 20140923
